FAERS Safety Report 14556278 (Version 2)
Quarter: 2018Q1

REPORT INFORMATION
  Report Type: Spontaneous
  Country: US (occurrence: US)
  Receive Date: 20180221
  Receipt Date: 20180308
  Transmission Date: 20180509
  Serious: Yes (Hospitalization, Other)
  Sender: FDA-Public Use
  Company Number: US-009507513-1802USA008503

PATIENT
  Sex: Male

DRUGS (17)
  1. BENTYL [Concomitant]
     Active Substance: DICYCLOMINE HYDROCHLORIDE
  2. CLOZARIL [Suspect]
     Active Substance: CLOZAPINE
     Dosage: 125 IU (UNSPECIFIED UNITS), UNK
  3. SINEMET [Suspect]
     Active Substance: CARBIDOPA\LEVODOPA
     Indication: DEPRESSION
     Dosage: 75-100 MG
  4. CLOZARIL [Suspect]
     Active Substance: CLOZAPINE
     Dosage: 100 IU(UNSPECIFIED UNIT), UNK
  5. REMERON [Concomitant]
     Active Substance: MIRTAZAPINE
  6. PROPRANOLOL [Concomitant]
     Active Substance: PROPRANOLOL HYDROCHLORIDE
  7. PRIMIDONE. [Concomitant]
     Active Substance: PRIMIDONE
  8. FLOMAX [Concomitant]
     Active Substance: TAMSULOSIN HYDROCHLORIDE
  9. BUSPAR [Concomitant]
     Active Substance: BUSPIRONE HYDROCHLORIDE
  10. NEXIUM [Concomitant]
     Active Substance: ESOMEPRAZOLE MAGNESIUM
  11. WELLBUTRIN [Concomitant]
     Active Substance: BUPROPION HYDROCHLORIDE
  12. CLOZARIL [Suspect]
     Active Substance: CLOZAPINE
     Dosage: 10 IU (UNSPECIFIED UNITS), UNK
  13. PENTASA [Concomitant]
     Active Substance: MESALAMINE
  14. XARELTO [Concomitant]
     Active Substance: RIVAROXABAN
  15. SERTRALINE HYDROCHLORIDE. [Concomitant]
     Active Substance: SERTRALINE HYDROCHLORIDE
  16. VALIUM [Concomitant]
     Active Substance: DIAZEPAM
  17. MERCAPTOPURINE. [Concomitant]
     Active Substance: MERCAPTOPURINE

REACTIONS (5)
  - Urosepsis [Unknown]
  - Parkinson^s disease [Unknown]
  - White blood cell count increased [Unknown]
  - Urinary tract infection [Unknown]
  - Contraindicated drug prescribed [Unknown]
